FAERS Safety Report 23268902 (Version 2)
Quarter: 2024Q1

REPORT INFORMATION
  Report Type: Spontaneous
  Country: US (occurrence: US)
  Receive Date: 20231206
  Receipt Date: 20240305
  Transmission Date: 20240409
  Serious: Yes (Other)
  Sender: FDA-Public Use
  Company Number: US-BRISTOL-MYERS SQUIBB COMPANY-2023-173714

PATIENT
  Age: 77 Year
  Sex: Male

DRUGS (1)
  1. ORENCIA [Suspect]
     Active Substance: ABATACEPT
     Indication: Product used for unknown indication
     Dosage: DOSE : UNAVAILABLE;     FREQ : INJECT 125 MG ONCE WEEKLY
     Route: 058

REACTIONS (3)
  - Spondylitis [Unknown]
  - Pain in extremity [Unknown]
  - Neuropathy peripheral [Unknown]
